FAERS Safety Report 19141693 (Version 1)
Quarter: 2021Q2

REPORT INFORMATION
  Report Type: Spontaneous
  Country: FR (occurrence: FR)
  Receive Date: 20210415
  Receipt Date: 20210415
  Transmission Date: 20210717
  Serious: Yes (Life-Threatening)
  Sender: FDA-Public Use
  Company Number: FR-MYLANLABS-2021M1022273

PATIENT
  Age: 76 Year
  Sex: Male
  Weight: 93 kg

DRUGS (9)
  1. ROSUVASTATINE                      /01588601/ [Concomitant]
     Active Substance: ROSUVASTATIN
     Dosage: UNK
  2. COUMADINE [Suspect]
     Active Substance: WARFARIN SODIUM
     Indication: ATRIAL FIBRILLATION
     Dosage: 1.5 DOSAGE FORM, QD
     Route: 048
     Dates: end: 20190923
  3. RILMENIDINE [Concomitant]
     Active Substance: RILMENIDINE
     Dosage: UNK
  4. CINACALCET. [Concomitant]
     Active Substance: CINACALCET
     Dosage: UNK
  5. TRAMADOL. [Concomitant]
     Active Substance: TRAMADOL
     Dosage: UNK
  6. KAYEXALATE [Concomitant]
     Active Substance: SODIUM POLYSTYRENE SULFONATE
     Dosage: UNK
  7. SOTALOL. [Suspect]
     Active Substance: SOTALOL
     Indication: PRODUCT USED FOR UNKNOWN INDICATION
     Dosage: 1 DOSAGE FORM, QD
     Route: 048
     Dates: end: 201909
  8. PARACETAMOL [Concomitant]
     Active Substance: ACETAMINOPHEN
     Dosage: UNK
  9. PERINDOPRIL [Concomitant]
     Active Substance: PERINDOPRIL
     Dosage: UNK

REACTIONS (1)
  - Shock haemorrhagic [Recovered/Resolved with Sequelae]

NARRATIVE: CASE EVENT DATE: 20190923
